FAERS Safety Report 22000205 (Version 3)
Quarter: 2023Q1

REPORT INFORMATION
  Report Type: Spontaneous
  Country: US (occurrence: US)
  Receive Date: 20230216
  Receipt Date: 20230315
  Transmission Date: 20230417
  Serious: Yes (Other)
  Sender: FDA-Public Use
  Company Number: US-PFIZER INC-PV202200129030

PATIENT
  Age: 70 Year
  Sex: Male
  Weight: 184.12 kg

DRUGS (1)
  1. BOSULIF [Suspect]
     Active Substance: BOSUTINIB MONOHYDRATE
     Indication: Chronic myeloid leukaemia
     Dosage: 300 MG, DAILY
     Dates: start: 20200627, end: 20221028

REACTIONS (3)
  - Pericardial effusion [Unknown]
  - Cardiac failure congestive [Unknown]
  - Renal disorder [Unknown]
